FAERS Safety Report 15345222 (Version 2)
Quarter: 2018Q4

REPORT INFORMATION
  Report Type: Spontaneous
  Country: US (occurrence: US)
  Receive Date: 20180903
  Receipt Date: 20181008
  Transmission Date: 20190204
  Serious: Yes (Other)
  Sender: FDA-Public Use
  Company Number: US-B.I. PHARMACEUTICALS,INC./RIDGEFIELD-2018-BI-043444

PATIENT
  Sex: Female

DRUGS (1)
  1. COMBIVENT [Suspect]
     Active Substance: ALBUTEROL SULFATE\IPRATROPIUM BROMIDE
     Indication: ASTHMA
     Dosage: FORM STRENGTH/ UNIT DOSE/ DAILY DOSE: 18 MCG / 103 MCG; FORMULATION: INHALATION AEROSOL
     Route: 065

REACTIONS (2)
  - Off label use [Unknown]
  - Cerebrovascular accident [Recovered/Resolved]
